FAERS Safety Report 5487735-7 (Version None)
Quarter: 2007Q4

REPORT INFORMATION
  Report Type: 
  Country: None (occurrence: None)
  Receive Date: 20071001
  Receipt Date: 20060914
  Transmission Date: 20080405
  Serious: Yes (Other)
  Sender: FDA-Public Use
  Company Number: 2006VX001383

PATIENT
  Age: 50 Year
  Sex: Male

DRUGS (1)
  1. EFUDEX [Suspect]
     Indication: HYPERKERATOSIS
     Dosage: ;BID;TOP
     Route: 061
     Dates: start: 20040101, end: 20040101

REACTIONS (1)
  - HERPES ZOSTER [None]
